FAERS Safety Report 17989295 (Version 1)
Quarter: 2020Q3

REPORT INFORMATION
  Report Type: Spontaneous
  Country: GB (occurrence: GB)
  Receive Date: 20200707
  Receipt Date: 20200707
  Transmission Date: 20201103
  Serious: Yes (Other)
  Sender: FDA-Public Use
  Company Number: GB-MYLANLABS-2020M1057348

PATIENT
  Age: 31 Year
  Sex: Female
  Weight: 58 kg

DRUGS (2)
  1. IBUPROFEN. [Suspect]
     Active Substance: IBUPROFEN
     Indication: PRODUCT USED FOR UNKNOWN INDICATION
     Dosage: 400
     Route: 048
  2. FERROUS FUMARATE [Concomitant]
     Active Substance: FERROUS FUMARATE
     Indication: ANAEMIA
     Dosage: 3 DOSAGE FORM, QD
     Dates: start: 20200302

REACTIONS (2)
  - Swollen tongue [Recovered/Resolved]
  - Hypersensitivity [Recovered/Resolved]

NARRATIVE: CASE EVENT DATE: 20200522
